FAERS Safety Report 21344391 (Version 1)
Quarter: 2022Q3

REPORT INFORMATION
  Report Type: Spontaneous
  Country: DE (occurrence: DE)
  Receive Date: 20220916
  Receipt Date: 20220916
  Transmission Date: 20221027
  Serious: Yes (Other)
  Sender: FDA-Public Use
  Company Number: None

PATIENT
  Age: 21 Year
  Sex: Male
  Weight: 85 kg

DRUGS (1)
  1. CLARITHROMYCIN [Suspect]
     Active Substance: CLARITHROMYCIN
     Indication: Tonsillar inflammation
     Dosage: 2 DOSAGE FORMS DAILY; 1-0-1 , STRENGTH  :  500MG,   DURATION : 4 DAYS, PHARMACEUTICAL DOSE FORM ADMI
     Route: 065
     Dates: start: 20220823, end: 20220827

REACTIONS (7)
  - Deafness [Not Recovered/Not Resolved]
  - Vertigo [Not Recovered/Not Resolved]
  - Dry mouth [Not Recovered/Not Resolved]
  - Palpitations [Not Recovered/Not Resolved]
  - Hyperhidrosis [Not Recovered/Not Resolved]
  - Rash vesicular [Not Recovered/Not Resolved]
  - Sleep disorder [Not Recovered/Not Resolved]

NARRATIVE: CASE EVENT DATE: 20220824
